FAERS Safety Report 8418512-2 (Version None)
Quarter: 2012Q2

REPORT INFORMATION
  Report Type: 
  Country: None (occurrence: None)
  Receive Date: 20120607
  Receipt Date: 20120524
  Transmission Date: 20120825
  Serious: Yes (Life-Threatening, Hospitalization)
  Sender: FDA-Public Use
  Company Number: DE-CELGENEUS-062-21880-10010879

PATIENT
  Age: 57 Year
  Sex: Female
  Weight: 48 kg

DRUGS (2)
  1. VIDAZA [Suspect]
     Dosage: 75 MILLIGRAM/SQ. METER
     Route: 050
     Dates: start: 20091210, end: 20091214
  2. REVLIMID [Suspect]
     Dosage: 15 MILLIGRAM
     Route: 048
     Dates: start: 20091215, end: 20091228

REACTIONS (2)
  - PNEUMONIA [None]
  - THROMBOCYTOPENIA [None]
